FAERS Safety Report 7422586-5 (Version None)
Quarter: 2011Q2

REPORT INFORMATION
  Report Type: 
  Country: None (occurrence: None)
  Receive Date: 20110419
  Receipt Date: 20110407
  Transmission Date: 20111010
  Serious: Yes (Hospitalization)
  Sender: FDA-Public Use
  Company Number: FR-JNJFOC-20110404224

PATIENT
  Age: 72 Year
  Sex: Female
  Weight: 65 kg

DRUGS (9)
  1. BI-PROFENID [Concomitant]
     Indication: ILL-DEFINED DISORDER
  2. DIANTALVIC [Concomitant]
  3. SPECIAFOLDINE [Concomitant]
     Indication: ANAEMIA
  4. VITAMIN D [Concomitant]
     Indication: HYPOVITAMINOSIS
  5. CORTANCYL [Concomitant]
     Indication: ILL-DEFINED DISORDER
  6. ACTONEL [Concomitant]
     Indication: MENOPAUSE
  7. GOLIMUMAB [Suspect]
     Route: 058
  8. EUPANTOL [Concomitant]
     Indication: GASTROINTESTINAL DISORDER THERAPY
  9. GOLIMUMAB [Suspect]
     Indication: ARTHRITIS
     Route: 058

REACTIONS (1)
  - SINUSITIS [None]
